FAERS Safety Report 8142016-8 (Version None)
Quarter: 2012Q1

REPORT INFORMATION
  Report Type: 
  Country: None (occurrence: None)
  Receive Date: 20120216
  Receipt Date: 20120208
  Transmission Date: 20120608
  Serious: Yes (Other)
  Sender: FDA-Public Use
  Company Number: US-B.I. PHARMACEUTICALS,INC./RIDGEFIELD-2011-DE-00461GD

PATIENT
  Sex: Female

DRUGS (3)
  1. LEVODOPA [Suspect]
     Indication: PARKINSON'S DISEASE
     Dosage: 600 MG
  2. ELDEPRYL [Suspect]
     Indication: PARKINSON'S DISEASE
     Dosage: 5 MG
  3. PRAMIPEXOLE DIHYCHLLORIDE [Suspect]
     Indication: PARKINSON'S DISEASE
     Dosage: }6 MG

REACTIONS (3)
  - JEALOUS DELUSION [None]
  - HYPERSEXUALITY [None]
  - MARITAL PROBLEM [None]
